FAERS Safety Report 23870168 (Version 1)
Quarter: 2024Q2

REPORT INFORMATION
  Report Type: Spontaneous
  Country: ZA (occurrence: None)
  Receive Date: 20240517
  Receipt Date: 20240517
  Transmission Date: 20240715
  Serious: Yes (Other)
  Sender: FDA-Public Use
  Company Number: 2024A112461

PATIENT
  Age: 71 Year
  Sex: Female

DRUGS (4)
  1. BUDESONIDE\FORMOTEROL [Suspect]
     Active Substance: BUDESONIDE\FORMOTEROL
     Indication: Asthma
     Dosage: 160/4.5 MCG, 60 UG/INHALATION, FREQUENCY UNKNOWN UNKNOWN
     Route: 055
  2. PATANOL [Concomitant]
     Active Substance: OLOPATADINE HYDROCHLORIDE
     Dosage: 1.0MG UNKNOWN
     Route: 048
  3. GENPAYNE [Concomitant]
     Indication: Pain
     Route: 048
  4. PREDNISONE [Concomitant]
     Active Substance: PREDNISONE
     Indication: Asthenia
     Route: 048

REACTIONS (1)
  - Illness [Unknown]
